FAERS Safety Report 5141077-8 (Version None)
Quarter: 2006Q4

REPORT INFORMATION
  Report Type: 
  Country: None (occurrence: None)
  Receive Date: 20061026
  Receipt Date: 20061011
  Transmission Date: 20070319
  Serious: Yes (Other)
  Sender: FDA-Public Use
  Company Number: SE-2006-030818

PATIENT
  Sex: Female

DRUGS (1)
  1. BETAFERON (INTERFERON BETA - 1B) INJECTION, 250UG [Suspect]
     Dosage: 250 UG E.O.D.
     Dates: start: 20040601

REACTIONS (1)
  - BREAST CANCER FEMALE [None]
